FAERS Safety Report 6389798-3 (Version None)
Quarter: 2009Q4

REPORT INFORMATION
  Report Type: 
  Country: None (occurrence: None)
  Receive Date: 20091002
  Receipt Date: 20091002
  Transmission Date: 20100525
  Serious: Yes (Other)
  Sender: FDA-Public Use
  Company Number: None

PATIENT
  Age: 34 Year
  Sex: Female
  Weight: 68.0396 kg

DRUGS (1)
  1. BUPROPION HYDROCHLORIDE [Suspect]
     Indication: DEPRESSION
     Dosage: 2 PILLS DAILY BUCCAL
     Route: 002
     Dates: start: 20090910, end: 20091001

REACTIONS (8)
  - ARTHRALGIA [None]
  - DIZZINESS [None]
  - DRUG EFFECT DECREASED [None]
  - FEELING ABNORMAL [None]
  - GASTRIC DISORDER [None]
  - IRRITABILITY [None]
  - NAUSEA [None]
  - PRODUCT SUBSTITUTION ISSUE [None]
